FAERS Safety Report 12546695 (Version 2)
Quarter: 2016Q3

REPORT INFORMATION
  Report Type: Report from Study
  Country: KR (occurrence: KR)
  Receive Date: 20160711
  Receipt Date: 20160718
  Transmission Date: 20161109
  Serious: Yes (Death, Other)
  Sender: FDA-Public Use
  Company Number: KR-GLAXOSMITHKLINE-KR2016GSK097767

PATIENT
  Age: 56 Year
  Sex: Male
  Weight: 44.6 kg

DRUGS (7)
  1. ASIMA [Concomitant]
     Indication: ASTHMA
     Dosage: 400 MG, BID
     Route: 048
     Dates: start: 20111102, end: 20160425
  2. ERDOS [Concomitant]
     Indication: ASTHMA
     Dosage: 300 MG, BID
     Route: 048
     Dates: start: 20111102, end: 20160425
  3. SPIRIVA [Concomitant]
     Active Substance: TIOTROPIUM BROMIDE MONOHYDRATE
     Indication: ASTHMA
     Dosage: 1 DF, QD
     Route: 055
     Dates: start: 20110113, end: 20160425
  4. MUCOPECT [Concomitant]
     Indication: ASTHMA
     Dosage: 30 MG, TID
     Route: 048
     Dates: start: 20150911, end: 20160425
  5. AZELASTINE [Concomitant]
     Active Substance: AZELASTINE
     Indication: ASTHMA
     Dosage: 1 MG, BID
     Route: 048
     Dates: start: 20140924, end: 20160425
  6. FLUTICASONE FUROATE + VILANTEROL TRIFENATATE [Suspect]
     Active Substance: FLUTICASONE FUROATE\VILANTEROL TRIFENATATE
     Indication: ASTHMA
     Dosage: 25 MG, QD
     Route: 055
     Dates: start: 20160414, end: 20160425
  7. SYNATURA [Concomitant]
     Indication: COUGH
     Dosage: 15 ML, TID
     Route: 048
     Dates: start: 20160215, end: 20160425

REACTIONS (1)
  - Pneumonia [Fatal]

NARRATIVE: CASE EVENT DATE: 20160426
